FAERS Safety Report 4537911-2 (Version None)
Quarter: 2004Q4

REPORT INFORMATION
  Report Type: 
  Country: None (occurrence: None)
  Receive Date: 20041224
  Receipt Date: 20041119
  Transmission Date: 20050328
  Serious: Yes (Life-Threatening, Hospitalization)
  Sender: FDA-Public Use
  Company Number: JP-MERCK-0411USA03914

PATIENT
  Age: 67 Year
  Sex: Female
  Weight: 62 kg

DRUGS (11)
  1. BROMOCRIPTINE MESYLATE [Concomitant]
     Route: 048
     Dates: start: 20021113
  2. INSULIN [Concomitant]
     Route: 051
  3. COZAAR [Suspect]
     Indication: HYPERTENSION
     Route: 048
     Dates: start: 20021113
  4. TEGRETOL [Suspect]
     Indication: CONVULSION
     Route: 048
     Dates: start: 20040618
  5. HYDANTOL [Suspect]
     Indication: CONVULSION
     Route: 048
     Dates: start: 20021113
  6. CARDENALIN [Concomitant]
     Indication: HYPERTENSION
     Route: 048
     Dates: start: 20021113
  7. ADALAT [Concomitant]
     Indication: HYPERTENSION
     Route: 048
     Dates: start: 20021113
  8. ASPIRIN [Concomitant]
     Route: 048
     Dates: start: 20021113
  9. THYRADIN-S [Concomitant]
     Indication: HYPOTHYROIDISM
     Route: 048
     Dates: start: 20021113
  10. LIPITOR [Concomitant]
     Route: 048
     Dates: start: 20021113
  11. VITAMIN E [Concomitant]
     Route: 048
     Dates: start: 20021113

REACTIONS (4)
  - CHRONIC SINUSITIS [None]
  - DEPRESSION [None]
  - STEVENS-JOHNSON SYNDROME [None]
  - SUICIDE ATTEMPT [None]
